FAERS Safety Report 9433346 (Version 4)
Quarter: 2013Q3

REPORT INFORMATION
  Report Type: Spontaneous
  Country: US (occurrence: US)
  Receive Date: 20130731
  Receipt Date: 20130903
  Transmission Date: 20140515
  Serious: Yes (Hospitalization, Other)
  Sender: FDA-Public Use
  Company Number: US-AMGEN-USASP2013052733

PATIENT
  Age: 72 Year
  Sex: Male
  Weight: 62.5 kg

DRUGS (4)
  1. NPLATE [Suspect]
     Indication: IMMUNE THROMBOCYTOPENIC PURPURA
     Dosage: 120 MUG, QWK
     Route: 058
     Dates: start: 20130401
  2. GAMMAGARD [Concomitant]
     Route: 042
  3. PREDNISONE [Concomitant]
     Dosage: 60 MG, QD
     Route: 065
  4. DEXAMETHASONE [Concomitant]

REACTIONS (3)
  - Platelet count abnormal [Not Recovered/Not Resolved]
  - Myocardial infarction [Unknown]
  - Therapeutic response decreased [Unknown]
